FAERS Safety Report 12746970 (Version 1)
Quarter: 2016Q3

REPORT INFORMATION
  Report Type: Spontaneous
  Country: US (occurrence: US)
  Receive Date: 20160915
  Receipt Date: 20160915
  Transmission Date: 20161109
  Serious: No
  Sender: FDA-Public Use
  Company Number: US-ASTELLAS-2015US034496

PATIENT
  Age: 67 Year
  Sex: Male

DRUGS (3)
  1. XTANDI [Suspect]
     Active Substance: ENZALUTAMIDE
     Route: 048
  2. ELIGARD [Concomitant]
     Active Substance: LEUPROLIDE ACETATE
     Indication: PRODUCT USED FOR UNKNOWN INDICATION
     Dosage: UNK UNK, UNKNOWN FREQ.
     Route: 065
  3. XTANDI [Suspect]
     Active Substance: ENZALUTAMIDE
     Indication: PROSTATE CANCER
     Route: 048
     Dates: start: 201509

REACTIONS (14)
  - Fatigue [Not Recovered/Not Resolved]
  - Somnolence [Unknown]
  - Muscular weakness [Not Recovered/Not Resolved]
  - Asthenia [Unknown]
  - Hypoaesthesia [Unknown]
  - Vision blurred [Unknown]
  - Nocturia [Unknown]
  - Dizziness [Unknown]
  - Bone pain [Unknown]
  - Underdose [Unknown]
  - Depression [Not Recovered/Not Resolved]
  - Insomnia [Unknown]
  - Constipation [Unknown]
  - Cataract [Unknown]

NARRATIVE: CASE EVENT DATE: 201509
